FAERS Safety Report 16902074 (Version 1)
Quarter: 2019Q4

REPORT INFORMATION
  Report Type: Report from Study
  Country: IT (occurrence: IT)
  Receive Date: 20191010
  Receipt Date: 20191010
  Transmission Date: 20200122
  Serious: Yes (Other)
  Sender: FDA-Public Use
  Company Number: IT-TEVA-2019-IT-1118825

PATIENT
  Age: 48 Year
  Sex: Female
  Weight: 78 kg

DRUGS (4)
  1. CARBOPLATINO TEVA 10 MG/ML [Suspect]
     Active Substance: CARBOPLATIN
     Indication: OVARIAN CANCER
     Dosage: 700 MG
     Route: 042
     Dates: start: 20190731, end: 20190821
  2. PACLITAXEL TEVA 6 MG/ML, CONCENTRATO PER SOLUZIONE PER INFUSIONE [Concomitant]
     Active Substance: PACLITAXEL
     Indication: OVARIAN CANCER
     Dosage: 175 MG
     Route: 042
     Dates: start: 20190731
  3. AVASTIN [Concomitant]
     Active Substance: BEVACIZUMAB
     Indication: OVARIAN CANCER
     Dosage: 15 MG
     Route: 042
     Dates: start: 20190821
  4. XANAX [Concomitant]
     Active Substance: ALPRAZOLAM

REACTIONS (5)
  - Malaise [Recovered/Resolved]
  - Throat tightness [Recovered/Resolved]
  - Oxygen saturation decreased [Recovered/Resolved]
  - Chest discomfort [Recovered/Resolved]
  - Hyperhidrosis [Recovered/Resolved]

NARRATIVE: CASE EVENT DATE: 20190821
